FAERS Safety Report 6664313-5 (Version None)
Quarter: 2010Q2

REPORT INFORMATION
  Report Type: 
  Country: None (occurrence: None)
  Receive Date: 20100401
  Receipt Date: 20100324
  Transmission Date: 20101027
  Serious: Yes (Other)
  Sender: FDA-Public Use
  Company Number: PHEH2008US04392

PATIENT
  Sex: Male

DRUGS (36)
  1. AREDIA [Suspect]
     Dosage: UNK/ MONTHLY
     Dates: start: 20011201, end: 20040501
  2. INSULIN [Concomitant]
  3. DEXAMETHASONE [Concomitant]
     Dosage: 10 MG, QD ON 4DAYS THEN OFF 4 DAYS
  4. METRONIDAZOLE [Concomitant]
     Dosage: 500 MG TABLETS
  5. FUROSEMIDE [Concomitant]
     Dosage: 20 MG
  6. PENICILLIN VK [Concomitant]
     Dosage: UNK
  7. ZYMAR [Concomitant]
     Dosage: UNK
  8. AMOXICILLIN [Concomitant]
     Dosage: %)) MG TABLETS
  9. OMNICEF [Concomitant]
     Dosage: 300 MG CAPSULES
  10. VIOXX [Concomitant]
     Dosage: 25 MG
  11. PROCHLORPERAZINE [Concomitant]
     Dosage: 10 MG
  12. AMOXICILINA CLAV ^GEMINIS^ [Concomitant]
     Dosage: 125 MG
  13. GABAPENTIN [Concomitant]
     Dosage: 300 MG
  14. VIAGRA [Concomitant]
     Dosage: 50 MG
  15. LORTAB [Concomitant]
     Dosage: 5 MG, UNK
  16. AUGMENTIN                               /SCH/ [Concomitant]
     Dosage: 875 MG, BID
     Route: 048
  17. ACTOS [Concomitant]
     Dosage: 45 MG, QAM
     Route: 048
  18. NEURONTIN [Concomitant]
     Dosage: 600 MG, TID
     Route: 048
  19. CLINDAMYCIN [Concomitant]
     Dosage: 900 MG, UNK
  20. PEROXIDE [Concomitant]
     Dosage: 20 ML, BID SWISH AND SPIT
     Route: 048
  21. LANTUS [Concomitant]
     Dosage: 30 U, QPM
  22. OXYCONTIN [Concomitant]
     Dosage: 80 MG, BID
  23. RADIATION THERAPY [Concomitant]
  24. KEFLEX [Concomitant]
  25. PERIDEX [Concomitant]
  26. DIPHENOXYLATE [Concomitant]
     Dosage: 5 MG, Q4H PRN
  27. VITAMIN C [Concomitant]
     Dosage: 500 MG, BID
  28. VITAMIN E [Concomitant]
     Dosage: 400 IU, QD
  29. DECADRON [Concomitant]
  30. HUMULIN R [Concomitant]
  31. SENNA [Concomitant]
  32. LYRICA [Concomitant]
  33. ASPIRIN [Concomitant]
     Dosage: UNK
  34. CEPHALEXIN [Concomitant]
     Dosage: 500 MG
  35. FLAGYL [Concomitant]
     Dosage: 500 MG / TID
  36. PREDNISONE TAB [Concomitant]
     Dosage: UNK

REACTIONS (43)
  - ANAEMIA [None]
  - ANXIETY [None]
  - BACK PAIN [None]
  - BONE DISORDER [None]
  - BONE EROSION [None]
  - BONE FRAGMENTATION [None]
  - BONE GRAFT [None]
  - BONE OPERATION [None]
  - COMPRESSION FRACTURE [None]
  - DEBRIDEMENT [None]
  - DECREASED APPETITE [None]
  - DECREASED IMMUNE RESPONSIVENESS [None]
  - DENTAL CARIES [None]
  - ERECTILE DYSFUNCTION [None]
  - FATIGUE [None]
  - HAEMORRHOIDS [None]
  - HYPERBARIC OXYGEN THERAPY [None]
  - HYPERGLYCAEMIA [None]
  - HYPERTENSION [None]
  - INFECTION [None]
  - INJURY [None]
  - JAW FRACTURE [None]
  - JAW OPERATION [None]
  - LEUKOCYTOSIS [None]
  - LUNG DISORDER [None]
  - MALAISE [None]
  - OSTEITIS [None]
  - OSTEOARTHRITIS [None]
  - OSTEOMYELITIS [None]
  - OSTEONECROSIS [None]
  - PAIN IN JAW [None]
  - PATHOLOGICAL FRACTURE [None]
  - PERIRECTAL ABSCESS [None]
  - POLLAKIURIA [None]
  - PURULENCE [None]
  - PYREXIA [None]
  - SEQUESTRECTOMY [None]
  - SINUS DISORDER [None]
  - SPEECH DISORDER [None]
  - SWELLING FACE [None]
  - THROMBOCYTOPENIA [None]
  - TOOTH EXTRACTION [None]
  - TOOTHACHE [None]
